FAERS Safety Report 14304973 (Version 1)
Quarter: 2017Q4

REPORT INFORMATION
  Report Type: Spontaneous
  Country: JP (occurrence: JP)
  Receive Date: 20171219
  Receipt Date: 20171219
  Transmission Date: 20180321
  Serious: Yes (Other)
  Sender: FDA-Public Use
  Company Number: JP-OTSUKA-JP-2011-10201

PATIENT
  Age: 78 Year
  Sex: Female
  Weight: 35 kg

DRUGS (28)
  1. BFLUID [Concomitant]
     Active Substance: AMINO ACIDS\DEXTROSE\ELECTROLYTES NOS\VITAMINS
     Indication: NUTRITIONAL CONDITION ABNORMAL
     Dosage: 500 ML, QD
     Route: 041
     Dates: start: 20101030, end: 20110114
  2. INTRAFAT [Concomitant]
     Indication: NUTRITIONAL CONDITION ABNORMAL
     Dosage: 100 ML, QD
     Route: 041
     Dates: start: 20101102, end: 20110114
  3. PHYSIO 35 [Concomitant]
     Active Substance: ELECTROLYTES NOS
     Indication: NUTRITIONAL CONDITION ABNORMAL
     Dosage: UNK
     Route: 041
     Dates: start: 20101104, end: 20101108
  4. SM [Concomitant]
     Indication: CHRONIC GASTRITIS
     Dosage: 2.6 G, QD
     Route: 048
     Dates: end: 20101118
  5. FOSAMAC [Concomitant]
     Active Substance: ALENDRONATE SODIUM
     Indication: OSTEOPOROSIS
     Dosage: 35 MG, QW
     Route: 048
  6. TRIAZOLAM. [Concomitant]
     Active Substance: TRIAZOLAM
     Dosage: TABLET
     Dates: end: 20101118
  7. TAKA-DIASTASE [Concomitant]
     Active Substance: DIASTASE
     Dosage: POWDER
     Route: 048
     Dates: end: 20101118
  8. URSO [Concomitant]
     Active Substance: URSODIOL
     Indication: CHRONIC HEPATITIS C
     Dosage: 200 MG, QD
     Route: 048
     Dates: end: 20101118
  9. VESICARE [Concomitant]
     Active Substance: SOLIFENACIN SUCCINATE
     Indication: POLLAKIURIA
     Dosage: 2.5 MG, QD
     Route: 048
     Dates: end: 20101118
  10. VITAMIN B 1-6-12 [Concomitant]
     Active Substance: CYANOCOBALAMIN\PYRIDOXINE\THIAMINE
     Dosage: INJECTION
     Dates: start: 20101104, end: 20101108
  11. LINEZOLID. [Concomitant]
     Active Substance: LINEZOLID
     Dosage: INJECTION,TAB 600MG ON 28OCT10-29OCT10
     Dates: start: 20101022, end: 20101024
  12. ABILIFY [Suspect]
     Active Substance: ARIPIPRAZOLE
     Indication: HALLUCINATION
     Dosage: 3 MG, QD
     Route: 048
     Dates: start: 20101027, end: 20101101
  13. GENTACIN [Concomitant]
     Active Substance: GENTAMICIN SULFATE
     Indication: INFECTION
     Dosage: 40 MG, QD
     Route: 041
     Dates: start: 20101102, end: 20101112
  14. VANCOMYCIN [Concomitant]
     Active Substance: VANCOMYCIN
     Indication: INFECTION
     Dosage: 0.5 G, BID
     Route: 041
     Dates: start: 20101103, end: 20101124
  15. ELNEOPA NO.2 [Concomitant]
     Active Substance: AMINO ACIDS\CARBOHYDRATES\ELECTROLYTES NOS\VITAMINS
     Indication: NUTRITIONAL CONDITION ABNORMAL
     Dosage: 1000 ML, QD
     Route: 041
     Dates: start: 20101110, end: 20101119
  16. VITAMIN C FUSO [Concomitant]
     Indication: NUTRITIONAL CONDITION ABNORMAL
     Dosage: UNK
     Route: 041
     Dates: start: 20101104, end: 20101108
  17. BENZALIN [Concomitant]
     Active Substance: NITRAZEPAM
     Indication: INSOMNIA
     Dosage: 2.5 MG, QD
     Route: 048
     Dates: end: 20101118
  18. VITAMIN C [Concomitant]
     Active Substance: ASCORBIC ACID
     Dosage: INJECTION,THERAPY ON 08NOV10
     Dates: start: 20101104, end: 20110315
  19. VALSARTAN. [Concomitant]
     Active Substance: VALSARTAN
     Dosage: TABLET
  20. HALCION [Concomitant]
     Active Substance: TRIAZOLAM
     Indication: INSOMNIA
     Dosage: 0.125 MG, QD
     Route: 048
     Dates: end: 20101118
  21. ZYVOX [Concomitant]
     Active Substance: LINEZOLID
     Indication: INFECTION
     Dosage: 600 MG, BID
     Route: 041
     Dates: start: 20101022, end: 20101024
  22. VITAMEDIN [Concomitant]
     Active Substance: CYANOCOBALAMIN\PYRIDOXINE HYDROCHLORIDE\THIAMINE
     Indication: NUTRITIONAL CONDITION ABNORMAL
     Dosage: UNK
     Route: 041
     Dates: start: 20101104, end: 20101108
  23. GASLON [Concomitant]
     Active Substance: IRSOGLADINE MALEATE
     Indication: CHRONIC GASTRITIS
     Dosage: 4 MG, QD
     Route: 048
     Dates: end: 20101118
  24. ABILIFY [Suspect]
     Active Substance: ARIPIPRAZOLE
     Indication: PARANOIA
     Dosage: 6 MG, QD
     Route: 048
     Dates: start: 20101102, end: 20101109
  25. ZYVOX [Concomitant]
     Active Substance: LINEZOLID
     Indication: INFECTION
     Dosage: 600 MG, BID
     Route: 048
     Dates: start: 20101028, end: 20101029
  26. HABEKACIN [Concomitant]
     Active Substance: ARBEKACIN
     Indication: INFECTION
     Dosage: 200 MG, QD
     Route: 041
     Dates: start: 20101029, end: 20101103
  27. ELNEOPA NO.1 [Concomitant]
     Indication: NUTRITIONAL CONDITION ABNORMAL
     Dosage: 1000 ML, QD
     Route: 041
     Dates: start: 20101109, end: 20101109
  28. DIOVAN [Concomitant]
     Active Substance: VALSARTAN
     Indication: HYPERTENSION
     Dosage: 40 MG, QD
     Route: 048

REACTIONS (3)
  - Blood potassium decreased [Recovered/Resolved]
  - Blood sodium decreased [Recovered/Resolved]
  - Blood chloride decreased [Recovered/Resolved]

NARRATIVE: CASE EVENT DATE: 20101109
